FAERS Safety Report 7399552-1 (Version None)
Quarter: 2011Q2

REPORT INFORMATION
  Report Type: 
  Country: None (occurrence: None)
  Receive Date: 20110407
  Receipt Date: 20101021
  Transmission Date: 20111010
  Serious: Yes (Hospitalization, Other)
  Sender: FDA-Public Use
  Company Number: US-BAYER-200942929NA

PATIENT
  Sex: Female
  Weight: 75 kg

DRUGS (7)
  1. YASMIN [Suspect]
     Indication: ACNE
  2. OCELLA [Suspect]
     Indication: CONTRACEPTION
  3. ALEVE [Concomitant]
  4. NEXIUM [Concomitant]
     Dosage: UNK
     Dates: start: 20090810
  5. YASMIN [Suspect]
     Indication: CONTRACEPTION
     Dosage: UNK
     Dates: start: 20080908
  6. YASMIN [Suspect]
     Indication: MIGRAINE
  7. OCELLA [Suspect]
     Indication: ACNE
     Route: 048
     Dates: start: 20080801, end: 20090701

REACTIONS (3)
  - CHOLECYSTITIS CHRONIC [None]
  - BILIARY DYSKINESIA [None]
  - GALLBLADDER INJURY [None]
